FAERS Safety Report 21379505 (Version 2)
Quarter: 2022Q4

REPORT INFORMATION
  Report Type: Spontaneous
  Country: IT (occurrence: IT)
  Receive Date: 20220927
  Receipt Date: 20221004
  Transmission Date: 20230113
  Serious: Yes (Life-Threatening, Hospitalization)
  Sender: FDA-Public Use
  Company Number: None

PATIENT
  Age: 82 Year
  Sex: Female
  Weight: 60 kg

DRUGS (4)
  1. CASPOFUNGIN ACETATE [Suspect]
     Active Substance: CASPOFUNGIN ACETATE
     Dosage: 50 MILLIGRAM, Q24H (PER DAY)
     Route: 042
     Dates: start: 20220824, end: 20220829
  2. MEROPENEM VENUS PHARMA [Concomitant]
     Dosage: UNK, IN TREATMENT SINCE AUGUST 19, 2022
     Dates: start: 20220819
  3. TARGOSID [Concomitant]
     Active Substance: TEICOPLANIN
     Dosage: UNK, IN TREATMENT SINCE AUGUST 19, 2022
  4. ELIQUIS [Concomitant]
     Active Substance: APIXABAN
     Indication: Pulmonary embolism
     Dosage: UNK, IN TREATMENT SINCE MAY 2022

REACTIONS (1)
  - Platelet count decreased [Recovering/Resolving]

NARRATIVE: CASE EVENT DATE: 20220826
